FAERS Safety Report 25613498 (Version 1)
Quarter: 2025Q3

REPORT INFORMATION
  Report Type: Report from Study
  Country: MX (occurrence: MX)
  Receive Date: 20250728
  Receipt Date: 20250728
  Transmission Date: 20251020
  Serious: Yes (Death, Hospitalization, Other)
  Sender: NOVARTIS
  Company Number: MX-002147023-NVSC2023MX116311

PATIENT
  Age: 53 Year
  Sex: Female
  Weight: 62 kg

DRUGS (14)
  1. RUXOLITINIB [Suspect]
     Active Substance: RUXOLITINIB
     Indication: Graft versus host disease
     Dosage: 15 MG, Q24H
     Route: 048
     Dates: start: 20220508
  2. RUXOLITINIB [Suspect]
     Active Substance: RUXOLITINIB
     Dosage: 15 MG (1 OF 15MG), BID
     Route: 048
     Dates: start: 202212
  3. RUXOLITINIB [Suspect]
     Active Substance: RUXOLITINIB
     Dosage: 10 MG, Q12H (5 MG) (IN THE MORNING AND AT NIGHT) (TABLET)
     Route: 048
     Dates: start: 20230508
  4. RUXOLITINIB [Suspect]
     Active Substance: RUXOLITINIB
     Dosage: 5 MG, Q24H (15 MG) (CAPSULE)
     Route: 048
  5. CYCLOSPORINE [Suspect]
     Active Substance: CYCLOSPORINE
     Indication: Product used for unknown indication
     Route: 065
  6. SULFAMETHOXAZOLE\TRIMETHOPRIM [Concomitant]
     Active Substance: SULFAMETHOXAZOLE\TRIMETHOPRIM
     Indication: Graft versus host disease
     Dosage: 2 UNK, Q72H
     Route: 065
  7. SULFAMETHOXAZOLE\TRIMETHOPRIM [Concomitant]
     Active Substance: SULFAMETHOXAZOLE\TRIMETHOPRIM
     Route: 048
  8. DEFLAZACORT [Concomitant]
     Active Substance: DEFLAZACORT
     Indication: Product used for unknown indication
     Route: 065
  9. OMEPRAZOLE [Concomitant]
     Active Substance: OMEPRAZOLE
     Indication: Product used for unknown indication
     Route: 065
  10. PREDNISONE [Concomitant]
     Active Substance: PREDNISONE
     Indication: Graft versus host disease
     Dosage: HALF (5MG) EVERY 3 DAY)
     Route: 065
  11. PREDNISONE [Concomitant]
     Active Substance: PREDNISONE
     Dosage: 10 MG, Q24H
     Route: 065
  12. ITRACONAZOLE [Concomitant]
     Active Substance: ITRACONAZOLE
     Indication: Product used for unknown indication
     Dosage: 1 UNK, Q48H
     Route: 065
  13. ATORVASTATIN [Concomitant]
     Active Substance: ATORVASTATIN
     Indication: Product used for unknown indication
     Route: 065
  14. ACYCLOVIR [Concomitant]
     Active Substance: ACYCLOVIR
     Indication: Graft versus host disease
     Route: 048

REACTIONS (33)
  - Death [Fatal]
  - Liver disorder [Unknown]
  - Mobility decreased [Recovering/Resolving]
  - Affect lability [Unknown]
  - Blister [Unknown]
  - Psoriasis [Unknown]
  - Malaise [Unknown]
  - Rash [Unknown]
  - Pain [Unknown]
  - Stomatitis [Not Recovered/Not Resolved]
  - Oral mucosal blistering [Unknown]
  - Discomfort [Unknown]
  - Oral pain [Recovering/Resolving]
  - Speech disorder [Unknown]
  - Dyskinesia [Unknown]
  - Gastrointestinal disorder [Recovering/Resolving]
  - Eating disorder [Recovering/Resolving]
  - Neoplasm malignant [Recovering/Resolving]
  - Fatigue [Unknown]
  - Dry eye [Unknown]
  - Lacrimation decreased [Unknown]
  - Salivary hyposecretion [Unknown]
  - Ocular hyperaemia [Unknown]
  - Asthenia [Unknown]
  - Hypoaesthesia [Unknown]
  - Scab [Unknown]
  - Lip haemorrhage [Unknown]
  - Feeling abnormal [Unknown]
  - Influenza [Recovered/Resolved]
  - Dry skin [Recovered/Resolved]
  - Secretion discharge [Recovered/Resolved]
  - Off label use [Unknown]
  - Disease complication [Unknown]

NARRATIVE: CASE EVENT DATE: 20230701
